FAERS Safety Report 6941305-X (Version None)
Quarter: 2010Q3

REPORT INFORMATION
  Report Type: 
  Country: None (occurrence: None)
  Receive Date: 20100824
  Receipt Date: 20100824
  Transmission Date: 20110219
  Serious: No
  Sender: FDA-Public Use
  Company Number: None

PATIENT
  Sex: Male
  Weight: 106.5953 kg

DRUGS (2)
  1. AVANDIA [Suspect]
     Dosage: 1 TABLET DAILY
     Dates: start: 20031206
  2. AVANDIA [Suspect]
     Dosage: 1 TABLET DAILY
     Dates: start: 20100720

REACTIONS (6)
  - CHEST PAIN [None]
  - DIZZINESS [None]
  - FLUID RETENTION [None]
  - OEDEMA PERIPHERAL [None]
  - PRURITUS [None]
  - WEIGHT INCREASED [None]
